FAERS Safety Report 4758480-8 (Version None)
Quarter: 2005Q3

REPORT INFORMATION
  Report Type: 
  Country: None (occurrence: None)
  Receive Date: 20050830
  Receipt Date: 20050830
  Transmission Date: 20060218
  Serious: Yes (Other)
  Sender: FDA-Public Use
  Company Number: None

PATIENT
  Age: 50 Year
  Sex: Female
  Weight: 53.5244 kg

DRUGS (5)
  1. JONAS NEUROPATHY CREAM [Suspect]
     Indication: TARSAL TUNNEL SYNDROME
     Dosage: 3 X/DAY BOTH FEET
     Dates: start: 20050722, end: 20050826
  2. XANAX [Concomitant]
  3. VALIUM [Concomitant]
  4. ESTROGEN [Concomitant]
  5. DIFLUCAN [Concomitant]

REACTIONS (8)
  - DIZZINESS [None]
  - DRUG INEFFECTIVE [None]
  - DRUG INTERACTION [None]
  - FACE INJURY [None]
  - IMPAIRED WORK ABILITY [None]
  - LACERATION [None]
  - NAUSEA [None]
  - VOMITING [None]
